FAERS Safety Report 5383513-8 (Version None)
Quarter: 2007Q3

REPORT INFORMATION
  Report Type: 
  Country: None (occurrence: None)
  Receive Date: 20070706
  Receipt Date: 20070620
  Transmission Date: 20080115
  Serious: Yes (Hospitalization)
  Sender: FDA-Public Use
  Company Number: DSA_30156_2007

PATIENT
  Age: 62 Year
  Sex: Female
  Weight: 45 kg

DRUGS (1)
  1. RENIVACE (RENIVACE) [Suspect]
     Indication: HYPERTENSION
     Dosage: (DF ORAL)
     Route: 048

REACTIONS (6)
  - AORTIC VALVE STENOSIS [None]
  - CHEST DISCOMFORT [None]
  - CONDITION AGGRAVATED [None]
  - DYSPNOEA EXERTIONAL [None]
  - POST PROCEDURAL COMPLICATION [None]
  - SWOLLEN TONGUE [None]
